FAERS Safety Report 22356478 (Version 1)
Quarter: 2023Q2

REPORT INFORMATION
  Report Type: Spontaneous
  Country: US (occurrence: None)
  Receive Date: 20230523
  Receipt Date: 20230523
  Transmission Date: 20230722
  Serious: Yes (Hospitalization)
  Sender: FDA-Public Use
  Company Number: None

PATIENT
  Sex: Female

DRUGS (1)
  1. TEMOZOLOMIDE [Suspect]
     Active Substance: TEMOZOLOMIDE
     Indication: Brain neoplasm malignant
     Dosage: ?TAKE 3 CAPSULES BY MOUTH 1 TIME A DAY FOR DAYS OF A 28 DAY CYCLE. (TOTAL DAILY DOSE OF 300MG)
     Route: 048
     Dates: start: 202211

REACTIONS (2)
  - Fall [None]
  - Head injury [None]
